FAERS Safety Report 6628491-6 (Version None)
Quarter: 2010Q1

REPORT INFORMATION
  Report Type: 
  Country: None (occurrence: None)
  Receive Date: 20100311
  Receipt Date: 20100301
  Transmission Date: 20100710
  Serious: Yes (Other)
  Sender: FDA-Public Use
  Company Number: US-ROCHE-690012

PATIENT
  Sex: Male

DRUGS (2)
  1. BEVACIZUMAB [Suspect]
     Dosage: CYCLE: 28 DAYS, FREQUENCY: OVER 30-90 MINS ON DAYS 1 AND 15, LAST ADMINISTRATION DATE: 15 APRIL 2009
     Route: 042
     Dates: start: 20070217
  2. TEMSIROLIMUS [Suspect]
     Dosage: CYCLE: 28 DAYS, OVER 30MINS ON DAYS 1, 8, 15 AND 22.  LAST ADMINISTRATION: 15 APRIL 2009
     Route: 042
     Dates: start: 20070217

REACTIONS (2)
  - PALMAR-PLANTAR ERYTHRODYSAESTHESIA SYNDROME [None]
  - PHOTOSENSITIVITY REACTION [None]
